FAERS Safety Report 7441453-4 (Version None)
Quarter: 2011Q2

REPORT INFORMATION
  Report Type: 
  Country: None (occurrence: None)
  Receive Date: 20110428
  Receipt Date: 20110302
  Transmission Date: 20111010
  Serious: No
  Sender: FDA-Public Use
  Company Number: US-JNJFOC-20110302369

PATIENT
  Sex: Male
  Weight: 106.6 kg

DRUGS (9)
  1. INVEGA SUSTENNA [Suspect]
     Indication: PRODUCT USED FOR UNKNOWN INDICATION
     Route: 030
  2. INVEGA SUSTENNA [Suspect]
     Route: 030
  3. CONSTULOSE [Concomitant]
     Indication: ILL-DEFINED DISORDER
  4. CLOZARIL [Concomitant]
     Indication: ILL-DEFINED DISORDER
  5. ATIVAN [Concomitant]
     Indication: ILL-DEFINED DISORDER
  6. SENOKOT [Concomitant]
     Indication: ILL-DEFINED DISORDER
  7. CELEXA [Concomitant]
     Indication: ILL-DEFINED DISORDER
  8. DITROPAN [Concomitant]
     Indication: ILL-DEFINED DISORDER
  9. MIRALAX [Concomitant]
     Indication: ILL-DEFINED DISORDER

REACTIONS (3)
  - INJECTION SITE CELLULITIS [None]
  - INAPPROPRIATE SCHEDULE OF DRUG ADMINISTRATION [None]
  - PRODUCT QUALITY ISSUE [None]
